FAERS Safety Report 5881211-5 (Version None)
Quarter: 2008Q3

REPORT INFORMATION
  Report Type: 
  Country: None (occurrence: None)
  Receive Date: 20080912
  Receipt Date: 20080815
  Transmission Date: 20090109
  Serious: No
  Sender: FDA-Public Use
  Company Number: US-ABBOTT-08P-163-0459200-00

PATIENT
  Sex: Female
  Weight: 55.842 kg

DRUGS (10)
  1. HUMIRA [Suspect]
     Indication: CROHN'S DISEASE
     Dosage: STARTER DOSE
     Route: 050
     Dates: start: 20080609
  2. HUMIRA [Suspect]
     Indication: RHEUMATOID ARTHRITIS
     Dosage: X1
  3. HUMIRA [Suspect]
  4. ESCITALOPRAM OXALATE [Concomitant]
     Indication: ANXIETY
     Route: 048
  5. ESCITALOPRAM OXALATE [Concomitant]
     Indication: DEPRESSION
  6. CYCLOBENZAPRINE HCL [Concomitant]
     Indication: ARTHRITIS
     Route: 048
  7. LEVOTHYROXINE SODIUM [Concomitant]
     Indication: HORMONE REPLACEMENT THERAPY
     Route: 048
  8. AMITRIPTYLINE HCL [Concomitant]
     Indication: INSOMNIA
     Route: 048
  9. VICODIN [Concomitant]
     Indication: PAIN
     Route: 048
  10. CLONAZEPAM [Concomitant]
     Indication: ANXIETY
     Dosage: 1/2 TABLET, AT BEDTIME
     Route: 048

REACTIONS (4)
  - INJECTION SITE HAEMATOMA [None]
  - INJECTION SITE HAEMORRHAGE [None]
  - INJECTION SITE RASH [None]
  - RASH [None]
